FAERS Safety Report 25240891 (Version 2)
Quarter: 2025Q2

REPORT INFORMATION
  Report Type: Spontaneous
  Country: US (occurrence: US)
  Receive Date: 20250425
  Receipt Date: 20250428
  Transmission Date: 20250716
  Serious: Yes (Hospitalization, Other)
  Sender: ELI LILLY AND COMPANY
  Company Number: US-ELI_LILLY_AND_COMPANY-US202504014463

PATIENT
  Sex: Female

DRUGS (1)
  1. HUMALOG [Suspect]
     Active Substance: INSULIN LISPRO
     Indication: Product used for unknown indication
     Route: 058

REACTIONS (6)
  - Coma [Unknown]
  - Diabetic coma [Unknown]
  - Ketoacidosis [Unknown]
  - Blood glucose increased [Unknown]
  - Visual impairment [Unknown]
  - Expired product administered [Unknown]
